FAERS Safety Report 20688345 (Version 1)
Quarter: 2022Q2

REPORT INFORMATION
  Report Type: Spontaneous
  Country: CA (occurrence: CA)
  Receive Date: 20220408
  Receipt Date: 20220408
  Transmission Date: 20220721
  Serious: Yes (Hospitalization)
  Sender: FDA-Public Use
  Company Number: CA-TEVA-2022-CA-2024320

PATIENT
  Age: 81 Year
  Sex: Male

DRUGS (1)
  1. NAPROXEN [Interacting]
     Active Substance: NAPROXEN
     Indication: Product used for unknown indication
     Route: 065

REACTIONS (4)
  - Haematemesis [Unknown]
  - Rectal haemorrhage [Unknown]
  - Upper gastrointestinal haemorrhage [Unknown]
  - Labelled drug-drug interaction issue [Unknown]
